FAERS Safety Report 14533708 (Version 1)
Quarter: 2018Q1

REPORT INFORMATION
  Report Type: Spontaneous
  Country: US (occurrence: US)
  Receive Date: 20180215
  Receipt Date: 20180215
  Transmission Date: 20180509
  Serious: Yes (Life-Threatening, Hospitalization, Other)
  Sender: FDA-Public Use
  Company Number: US-VISTAPHARM, INC.-VER201802-000351

PATIENT
  Age: 75 Year
  Sex: Female

DRUGS (5)
  1. GASTROGRAFIN [Concomitant]
     Active Substance: DIATRIZOATE MEGLUMINE\DIATRIZOATE SODIUM
  2. CALCIUM BICARBONATE [Concomitant]
     Active Substance: CALCIUM BICARBONATE
     Indication: DYSPEPSIA
  3. HYDROCODONE AND ACETAMINOPHEN [Suspect]
     Active Substance: ACETAMINOPHEN\HYDROCODONE
     Indication: MIGRAINE
     Dosage: 3-4 TABLETS; EVERY DAY FOR NEARLY 20 YEARS
  4. ASPIRIN. [Suspect]
     Active Substance: ASPIRIN
     Indication: MIGRAINE
     Dosage: 3-4 TABLETS; EVERY DAY FOR NEARLY 20 YEARS
  5. CAFFEINE. [Suspect]
     Active Substance: CAFFEINE
     Indication: MIGRAINE
     Dosage: 3-4 TABLETS; EVERY DAY FOR NEARLY 20 YEARS

REACTIONS (8)
  - Haematemesis [Recovering/Resolving]
  - Oesophageal injury [Recovering/Resolving]
  - Oesophageal mucosal dissection [Recovering/Resolving]
  - Pyloric stenosis [Recovering/Resolving]
  - Peptic ulcer [Recovering/Resolving]
  - Vomiting [Recovering/Resolving]
  - Obstruction gastric [Recovering/Resolving]
  - Gastrooesophageal reflux disease [Recovering/Resolving]
